FAERS Safety Report 5349298-6 (Version None)
Quarter: 2007Q2

REPORT INFORMATION
  Report Type: 
  Country: None (occurrence: None)
  Receive Date: 20070607
  Receipt Date: 20070530
  Transmission Date: 20071010
  Serious: Yes (Disabling, Other)
  Sender: FDA-Public Use
  Company Number: B0463279A

PATIENT
  Age: 72 Year
  Sex: Female
  Weight: 74 kg

DRUGS (6)
  1. AVANDIA [Suspect]
     Dosage: 4MG PER DAY
     Route: 048
     Dates: start: 20040101, end: 20070328
  2. ASAFLOW [Concomitant]
     Dosage: 160MG PER DAY
     Route: 048
  3. GLICLAZIDE [Concomitant]
     Route: 048
  4. ATACAND HCT [Concomitant]
     Route: 048
  5. ROSUVASTATIN [Concomitant]
     Route: 048
  6. CARVEDILOL [Concomitant]
     Route: 048

REACTIONS (5)
  - ABASIA [None]
  - ARTHRITIS [None]
  - PAIN [None]
  - STRESS FRACTURE [None]
  - SWELLING [None]
